FAERS Safety Report 9867227 (Version 1)
Quarter: 2014Q1

REPORT INFORMATION
  Report Type: Spontaneous
  Country: US (occurrence: US)
  Receive Date: 20140204
  Receipt Date: 20140204
  Transmission Date: 20141002
  Serious: Yes (Hospitalization)
  Sender: FDA-Public Use
  Company Number: US-DRREDDYS-USA/USA/14/0037658

PATIENT
  Age: 37 Year
  Sex: Female

DRUGS (14)
  1. LAMOTRIGINE TABLETS [Suspect]
     Indication: MAJOR DEPRESSION
     Route: 065
  2. LAMOTRIGINE TABLETS [Suspect]
     Indication: OBSESSIVE-COMPULSIVE DISORDER
  3. QUETIAPINE FUMARATE TABLETS [Suspect]
     Indication: DEPRESSION
     Route: 065
  4. QUETIAPINE FUMARATE TABLETS [Suspect]
     Indication: OBSESSIVE-COMPULSIVE DISORDER
  5. FLUOXETINE [Suspect]
     Indication: DEPRESSION
     Route: 065
  6. FLUOXETINE [Suspect]
     Indication: OBSESSIVE-COMPULSIVE DISORDER
  7. PAROXETINE [Suspect]
     Indication: MAJOR DEPRESSION
     Route: 065
  8. PAROXETINE [Suspect]
     Indication: OBSESSIVE-COMPULSIVE DISORDER
  9. CLONAZEPAM [Suspect]
     Indication: PRODUCT USED FOR UNKNOWN INDICATION
     Route: 065
  10. LORAZEPAM [Suspect]
     Indication: DEPRESSION
     Route: 065
  11. LORAZEPAM [Suspect]
     Indication: OBSESSIVE-COMPULSIVE DISORDER
  12. LORAZEPAM [Suspect]
     Indication: ANXIETY
  13. HALOPERIDOL [Suspect]
     Indication: DEPRESSION
     Route: 051
  14. HALOPERIDOL [Suspect]
     Indication: OBSESSIVE-COMPULSIVE DISORDER

REACTIONS (14)
  - Suicide attempt [Unknown]
  - Intentional overdose [Unknown]
  - Loss of consciousness [Recovering/Resolving]
  - Depression [Recovering/Resolving]
  - Anxiety [Recovering/Resolving]
  - Fatigue [Recovering/Resolving]
  - Gestational diabetes [Recovering/Resolving]
  - Pre-eclampsia [Recovering/Resolving]
  - Transaminases increased [Recovering/Resolving]
  - Electrocardiogram QT prolonged [Recovering/Resolving]
  - Premature labour [Unknown]
  - External cephalic version [Unknown]
  - Caesarean section [Unknown]
  - Exposure during pregnancy [Unknown]
